FAERS Safety Report 9308871 (Version 2)
Quarter: 2013Q3

REPORT INFORMATION
  Report Type: Spontaneous
  Country: US (occurrence: US)
  Receive Date: 20130524
  Receipt Date: 20130709
  Transmission Date: 20140515
  Serious: Yes (Other)
  Sender: FDA-Public Use
  Company Number: US-PFIZER INC-2013159060

PATIENT
  Age: 53 Year
  Sex: Female
  Weight: 86 kg

DRUGS (15)
  1. CELEBREX [Suspect]
     Indication: ARTHRALGIA
     Dosage: 200 MG, 2X/DAY
     Route: 048
     Dates: start: 1999
  2. CELEBREX [Suspect]
     Indication: RHEUMATOID ARTHRITIS
     Dosage: 100 MG, 4X/DAY
     Route: 048
  3. CELEBREX [Suspect]
     Indication: PAIN
  4. CELEBREX [Suspect]
     Indication: FIBROMYALGIA
  5. NORCO [Concomitant]
     Dosage: 10 / 325, AS NEEDED
  6. NORCO [Concomitant]
     Dosage: 50 MG, UNK
  7. NORCO [Concomitant]
     Dosage: 350 MG, 4X/DAY
  8. RELPAX [Concomitant]
     Indication: MIGRAINE
     Dosage: UNK
  9. METHADONE [Concomitant]
     Indication: PAIN
     Dosage: UNK
  10. NEURONTIN [Concomitant]
     Dosage: 2200MG DAILY
  11. CELEXA [Concomitant]
     Dosage: 40 MG, 1X/DAY
  12. SOMA [Concomitant]
     Dosage: 350 MG, 4X/DAY
  13. BACLOFEN [Concomitant]
     Dosage: UNK
  14. ATARAX [Concomitant]
     Indication: HYPERSENSITIVITY
     Dosage: 30 MG, AS NEEDED
  15. ATIVAN [Concomitant]
     Dosage: 0.5 MG, AS NEEDED

REACTIONS (10)
  - Addison^s disease [Unknown]
  - Haemorrhage [Not Recovered/Not Resolved]
  - Haematuria [Not Recovered/Not Resolved]
  - Protein urine [Unknown]
  - Abdominal discomfort [Unknown]
  - Blister [Unknown]
  - Skin disorder [Unknown]
  - Body height decreased [Unknown]
  - Weight decreased [Unknown]
  - Drug ineffective [Unknown]
